FAERS Safety Report 4282887-9 (Version None)
Quarter: 2004Q1

REPORT INFORMATION
  Report Type: 
  Country: None (occurrence: None)
  Receive Date: 20040130
  Receipt Date: 20030910
  Transmission Date: 20041129
  Serious: Yes (Hospitalization)
  Sender: FDA-Public Use
  Company Number: US-BRISTOL-MYERS SQUIBB COMPANY-12380036

PATIENT
  Age: 48 Year
  Sex: Female
  Weight: 73 kg

DRUGS (3)
  1. SERZONE [Suspect]
     Indication: DEPRESSION
     Dosage: ^20 MG, ONE TABLET ONCE DAILY FOR ABOUT 3 WEEKS IN 1997^
     Route: 048
     Dates: start: 19970101, end: 19970101
  2. KLONOPIN [Concomitant]
  3. TRAZODONE HCL [Concomitant]

REACTIONS (3)
  - DYSPEPSIA [None]
  - ORAL MUCOSAL BLISTERING [None]
  - VOMITING [None]
